FAERS Safety Report 6765236-3 (Version None)
Quarter: 2010Q2

REPORT INFORMATION
  Report Type: 
  Country: None (occurrence: None)
  Receive Date: 20100611
  Receipt Date: 20100527
  Transmission Date: 20101027
  Serious: Yes (Other)
  Sender: FDA-Public Use
  Company Number: US-ASTRAZENECA-2009UW17751

PATIENT
  Age: 43 Year
  Sex: Male
  Weight: 122.5 kg

DRUGS (5)
  1. SEROQUEL [Suspect]
     Indication: DEPRESSION
     Route: 048
     Dates: start: 20040101, end: 20070101
  2. SEROQUEL [Suspect]
     Route: 048
     Dates: start: 20041009, end: 20050425
  3. SEROQUEL [Suspect]
     Route: 048
     Dates: start: 20050629
  4. PROZAC [Concomitant]
  5. TRAZODONE HCL [Concomitant]

REACTIONS (6)
  - BLOOD CHOLESTEROL INCREASED [None]
  - BLOOD TRIGLYCERIDES INCREASED [None]
  - HYPERLIPIDAEMIA [None]
  - MYOCARDIAL INFARCTION [None]
  - TYPE 2 DIABETES MELLITUS [None]
  - WEIGHT INCREASED [None]
